FAERS Safety Report 5711234-8 (Version None)
Quarter: 2008Q2

REPORT INFORMATION
  Report Type: 
  Country: None (occurrence: None)
  Receive Date: 20080421
  Receipt Date: 20080411
  Transmission Date: 20081010
  Serious: Yes (Other)
  Sender: FDA-Public Use
  Company Number: AU-SOLVAY-00308001556

PATIENT
  Age: 74 Year
  Sex: Male

DRUGS (2)
  1. REANDRON [Concomitant]
     Indication: DRUG USE FOR UNKNOWN INDICATION
     Dosage: DAILY DOSE: 1000 MILLIGRAM(S), 2 INJECTIONS USED IN TOTAL
     Route: 065
  2. TESTOGEL [Suspect]
     Indication: PRIMARY HYPOGONADISM
     Dosage: DAILY DOSE: 5 GRAM(S)
     Route: 062
     Dates: start: 20070101, end: 20080101

REACTIONS (3)
  - ANGIOEDEMA [None]
  - APPLICATION SITE REACTION [None]
  - SWELLING [None]
